FAERS Safety Report 16818945 (Version 1)
Quarter: 2019Q3

REPORT INFORMATION
  Report Type: Spontaneous
  Country: US (occurrence: US)
  Receive Date: 20190917
  Receipt Date: 20190917
  Transmission Date: 20191005
  Serious: Yes (Life-Threatening, Hospitalization)
  Sender: FDA-Public Use
  Company Number: US-TEVA-2019-US-1108526

PATIENT
  Age: 23 Month
  Sex: Female

DRUGS (2)
  1. TEMOZOLOMIDE. [Suspect]
     Active Substance: TEMOZOLOMIDE
     Indication: ACCIDENTAL EXPOSURE TO PRODUCT BY CHILD
  2. TEMOZOLOMIDE. [Suspect]
     Active Substance: TEMOZOLOMIDE
     Indication: ACCIDENTAL OVERDOSE
     Route: 048

REACTIONS (11)
  - Hypotension [Unknown]
  - Decerebrate posture [Unknown]
  - Brain injury [Not Recovered/Not Resolved]
  - Electroencephalogram abnormal [Not Recovered/Not Resolved]
  - Cardiomegaly [Unknown]
  - Pancytopenia [Recovering/Resolving]
  - Haemorrhagic transformation stroke [Not Recovered/Not Resolved]
  - Accidental overdose [Not Recovered/Not Resolved]
  - Accidental exposure to product by child [Not Recovered/Not Resolved]
  - Haematotoxicity [Recovering/Resolving]
  - Pulseless electrical activity [Recovered/Resolved]
